FAERS Safety Report 6517038 (Version 13)
Quarter: 2014Q4

REPORT INFORMATION
  Report Type: Report from Study
  Country: AR (occurrence: AR)
  Receive Date: 20071231
  Receipt Date: 20141113
  Transmission Date: 20150529
  Serious: Yes (Disabling, Other)
  Sender: FDA-Public Use
  Company Number: PHHO2007AR20971

PATIENT
  Age: 47 Year
  Sex: Male
  Weight: 93.5 kg

DRUGS (2)
  1. LDT600 [Suspect]
     Active Substance: TELBIVUDINE
     Indication: CHRONIC HEPATITIS B
     Dosage: 600 MG, QD
     Route: 048
     Dates: start: 20070723, end: 20071210
  2. PEGASYS [Suspect]
     Active Substance: PEGINTERFERON ALFA-2A
     Indication: CHRONIC HEPATITIS B
     Dosage: 180 UG, QW
     Route: 058
     Dates: start: 20070723, end: 20071210

REACTIONS (6)
  - Peripheral sensory neuropathy [Recovering/Resolving]
  - Paraesthesia [Recovering/Resolving]
  - Myalgia [Unknown]
  - Myositis [Unknown]
  - Blood creatine phosphokinase increased [Unknown]
  - Sensory loss [Recovering/Resolving]

NARRATIVE: CASE EVENT DATE: 20070918
